FAERS Safety Report 16304422 (Version 2)
Quarter: 2019Q2

REPORT INFORMATION
  Report Type: Spontaneous
  Country: AU (occurrence: AU)
  Receive Date: 20190513
  Receipt Date: 20190621
  Transmission Date: 20190711
  Serious: Yes (Hospitalization, Other)
  Sender: FDA-Public Use
  Company Number: AU-SA-2019SA127722

PATIENT
  Age: 48 Year
  Sex: Female

DRUGS (2)
  1. LEMTRADA [Suspect]
     Active Substance: ALEMTUZUMAB
     Route: 041
  2. LEMTRADA [Suspect]
     Active Substance: ALEMTUZUMAB
     Dosage: UNK
     Route: 041
     Dates: start: 20180219

REACTIONS (5)
  - Evans syndrome [Unknown]
  - Thrombocytopenia [Unknown]
  - Epistaxis [Unknown]
  - Platelet count decreased [Unknown]
  - Hypoaesthesia [Unknown]
